FAERS Safety Report 11864706 (Version 4)
Quarter: 2019Q3

REPORT INFORMATION
  Report Type: Report from Study
  Country: US (occurrence: US)
  Receive Date: 20151223
  Receipt Date: 20190919
  Transmission Date: 20191004
  Serious: Yes (Hospitalization, Other)
  Sender: FDA-Public Use
  Company Number: US-ACTELION-A-US2015-128845

PATIENT
  Age: 73 Year
  Sex: Female

DRUGS (12)
  1. FUROSEMIDE. [Concomitant]
     Active Substance: FUROSEMIDE
     Dosage: 40 MG, QD
     Dates: start: 20141020
  2. ENOXAPARIN [Concomitant]
     Active Substance: ENOXAPARIN
     Dosage: 40 MG
  3. CLOPIDOGREL [Concomitant]
     Active Substance: CLOPIDOGREL BISULFATE
     Dosage: 75 MG
  4. TRACLEER [Suspect]
     Active Substance: BOSENTAN
     Indication: PULMONARY HYPERTENSION
     Dosage: 125 MG, BID
     Route: 048
     Dates: start: 200608
  5. FUROSEMIDE. [Concomitant]
     Active Substance: FUROSEMIDE
     Dosage: 80 MG, QD
     Dates: start: 20131003
  6. PRAVASTATIN. [Concomitant]
     Active Substance: PRAVASTATIN
     Dosage: 80 MG
  7. LEVOTHYROXINE. [Concomitant]
     Active Substance: LEVOTHYROXINE
     Dosage: 125 MCG
  8. HUMALOG [Concomitant]
     Active Substance: INSULIN LISPRO
     Route: 058
  9. LOSARTAN POTASSIUM. [Concomitant]
     Active Substance: LOSARTAN POTASSIUM
     Dosage: 50 MG
  10. PRIMIDONE. [Concomitant]
     Active Substance: PRIMIDONE
     Dosage: 50 MG
  11. VITAMIN D3 [Concomitant]
     Active Substance: CHOLECALCIFEROL
     Dosage: 1000 U
  12. LANTUS [Concomitant]
     Active Substance: INSULIN GLARGINE
     Route: 058

REACTIONS (39)
  - Hemiparesis [Unknown]
  - Blood glucose increased [Unknown]
  - Blood urea increased [Unknown]
  - Monocyte count increased [Unknown]
  - Spinal operation [Unknown]
  - Oedema [Unknown]
  - Pollakiuria [Unknown]
  - Blood calcium decreased [Unknown]
  - Spinal stenosis [Unknown]
  - Cor pulmonale [Unknown]
  - Dyspnoea [Unknown]
  - Weight decreased [Unknown]
  - Contusion [Unknown]
  - Dyspnoea exertional [Unknown]
  - White blood cell count increased [Unknown]
  - Osteoarthritis [Unknown]
  - Mean cell volume increased [Unknown]
  - Hypertension [Unknown]
  - Neck surgery [Unknown]
  - Protein total decreased [Unknown]
  - Pulmonary hypertension [Unknown]
  - Vitamin D deficiency [Unknown]
  - Hyperlipidaemia [Unknown]
  - Fatigue [Unknown]
  - Nasal congestion [Unknown]
  - Snoring [Unknown]
  - Cerebrovascular accident [Unknown]
  - Obesity [Unknown]
  - Restless legs syndrome [Unknown]
  - Gait disturbance [Recovering/Resolving]
  - Blood creatinine increased [Unknown]
  - Glomerular filtration rate decreased [Unknown]
  - Hypothyroidism [Unknown]
  - Nocturia [Unknown]
  - Arthritis [Unknown]
  - Sleep apnoea syndrome [Unknown]
  - Diabetes mellitus [Unknown]
  - Unevaluable event [Unknown]
  - Heart rate increased [Unknown]

NARRATIVE: CASE EVENT DATE: 201211
